FAERS Safety Report 15730455 (Version 2)
Quarter: 2019Q2

REPORT INFORMATION
  Report Type: Spontaneous
  Country: US (occurrence: US)
  Receive Date: 20181217
  Receipt Date: 20190527
  Transmission Date: 20190711
  Serious: Yes (Other)
  Sender: FDA-Public Use
  Company Number: US-SA-2018SA337603

PATIENT
  Age: 57 Year
  Sex: Female
  Weight: 65.76 kg

DRUGS (8)
  1. NEOSAR [Concomitant]
     Active Substance: CYCLOPHOSPHAMIDE
     Dosage: UNK UNK, UNK
  2. BENADRYL [Concomitant]
     Active Substance: DIPHENHYDRAMINE HYDROCHLORIDE
     Dosage: UNK UNK, UNK
  3. ALLEGRA [Concomitant]
     Active Substance: FEXOFENADINE HYDROCHLORIDE
     Dosage: UNK
     Dates: start: 1995
  4. ADRIAMYCIN [Concomitant]
     Active Substance: DOXORUBICIN HYDROCHLORIDE
  5. LEXAPRO [Concomitant]
     Active Substance: ESCITALOPRAM OXALATE
     Dosage: 10 MG, UNK
     Route: 065
  6. GUAIFENESIN. [Concomitant]
     Active Substance: GUAIFENESIN
     Dosage: UNK
     Dates: start: 1995
  7. TAXOTERE [Suspect]
     Active Substance: DOCETAXEL
     Dosage: 170 MG, Q3W
     Route: 042
     Dates: start: 20021115, end: 20021115
  8. TAXOTERE [Suspect]
     Active Substance: DOCETAXEL
     Indication: BREAST CANCER FEMALE
     Dosage: 170 MG, Q3W
     Route: 042
     Dates: start: 20020913, end: 20020913

REACTIONS (6)
  - Emotional distress [Unknown]
  - Pain [Unknown]
  - Alopecia [Recovering/Resolving]
  - Impaired quality of life [Unknown]
  - Anxiety [Unknown]
  - Psychological trauma [Unknown]

NARRATIVE: CASE EVENT DATE: 20021013
